FAERS Safety Report 10781339 (Version 5)
Quarter: 2015Q2

REPORT INFORMATION
  Report Type: Spontaneous
  Country: US (occurrence: US)
  Receive Date: 20150210
  Receipt Date: 20150617
  Transmission Date: 20150821
  Serious: No
  Sender: FDA-Public Use
  Company Number: US-GLAXOSMITHKLINE-A1080963A

PATIENT
  Age: 76 Year
  Sex: Female

DRUGS (4)
  1. ADCIRCA [Concomitant]
     Active Substance: TADALAFIL
  2. FLOLAN [Suspect]
     Active Substance: EPOPROSTENOL SODIUM
     Indication: PULMONARY HYPERTENSION
     Dosage: 30 NG/KG/MIN, CONC: 45,000 NG/ML, PUMP RATE 72 ML/DAY, VIAL STRENGTH: 1.5 MG
     Route: 065
     Dates: start: 20091223
  3. FLOLAN [Suspect]
     Active Substance: EPOPROSTENOL SODIUM
     Dosage: 30 NG/KG/MIN, CO
  4. FLOLAN [Suspect]
     Active Substance: EPOPROSTENOL SODIUM
     Dosage: 30 NG/KG/MIN
     Route: 065

REACTIONS (10)
  - Device issue [Unknown]
  - Hypoaesthesia [Unknown]
  - Diarrhoea [Unknown]
  - Pain in jaw [Unknown]
  - Device infusion issue [Unknown]
  - Upper respiratory tract infection [Unknown]
  - Dizziness [Recovered/Resolved]
  - Dyspnoea exertional [Unknown]
  - Headache [Unknown]
  - Peripheral swelling [Unknown]

NARRATIVE: CASE EVENT DATE: 20140709
